FAERS Safety Report 4305064-1 (Version None)
Quarter: 2004Q1

REPORT INFORMATION
  Report Type: 
  Country: None (occurrence: None)
  Receive Date: 20040225
  Receipt Date: 20040225
  Transmission Date: 20041129
  Serious: No
  Sender: FDA-Public Use
  Company Number: None

PATIENT
  Age: 46 Year
  Sex: Female

DRUGS (4)
  1. PHENYTOIN [Suspect]
     Indication: SUBDURAL HAEMATOMA
     Dosage: 100 MG TID
  2. NIMODIPINE [Concomitant]
  3. METOPROLOL [Concomitant]
  4. RANITDINE [Concomitant]

REACTIONS (1)
  - LIVER FUNCTION TEST ABNORMAL [None]
